FAERS Safety Report 17492700 (Version 2)
Quarter: 2020Q1

REPORT INFORMATION
  Report Type: Spontaneous
  Country: SE (occurrence: SE)
  Receive Date: 20200304
  Receipt Date: 20200309
  Transmission Date: 20200409
  Serious: Yes (Other)
  Sender: FDA-Public Use
  Company Number: SE-JNJFOC-20200237856

PATIENT
  Sex: Male

DRUGS (1)
  1. IPREN CAPSULES SOFT 400MG PR-010688 [Suspect]
     Active Substance: IBUPROFEN
     Indication: MYALGIA
     Dosage: NORMAL DOSE. ONLY ONCE.
     Route: 048
     Dates: start: 20200222, end: 20200222

REACTIONS (3)
  - Foreign body in respiratory tract [Recovered/Resolved]
  - Product size issue [Recovered/Resolved]
  - Ill-defined disorder [Recovered/Resolved]

NARRATIVE: CASE EVENT DATE: 20200222
